FAERS Safety Report 5890039-1 (Version None)
Quarter: 2008Q3

REPORT INFORMATION
  Report Type: 
  Country: None (occurrence: None)
  Receive Date: 20080919
  Receipt Date: 20080909
  Transmission Date: 20090109
  Serious: Yes (Hospitalization, Other)
  Sender: FDA-Public Use
  Company Number: GB-PFIZER INC-2008045319

PATIENT
  Age: 13 Year
  Sex: Male

DRUGS (1)
  1. HYDROCORTISONE ACETATE [Suspect]
     Indication: DERMATITIS ATOPIC

REACTIONS (3)
  - CATARACT [None]
  - ENDOPHTHALMITIS [None]
  - POSTERIOR CAPSULE OPACIFICATION [None]
